FAERS Safety Report 4462695-6 (Version None)
Quarter: 2004Q3

REPORT INFORMATION
  Report Type: 
  Country: None (occurrence: None)
  Receive Date: 20040927
  Receipt Date: 20040914
  Transmission Date: 20050211
  Serious: Yes (Hospitalization)
  Sender: FDA-Public Use
  Company Number: 2004-120356-NL

PATIENT
  Age: 38 Year
  Sex: Female
  Weight: 91 kg

DRUGS (3)
  1. REMERON [Suspect]
     Indication: DEPRESSION
     Dosage: 30 MG QD ORAL
     Route: 048
     Dates: start: 20020101, end: 20040901
  2. GEODON [Suspect]
     Dosage: 160 MG QD ORAL
     Route: 048
     Dates: start: 20020101, end: 20040910
  3. GEODON [Suspect]
     Dosage: 80 MG QD ORAL
     Route: 048
     Dates: start: 20040910, end: 20040913

REACTIONS (5)
  - AGITATION [None]
  - ANXIETY [None]
  - HOSTILITY [None]
  - INSOMNIA [None]
  - PARANOIA [None]
